FAERS Safety Report 7910646-1 (Version None)
Quarter: 2011Q4

REPORT INFORMATION
  Report Type: 
  Country: None (occurrence: None)
  Receive Date: 20111111
  Receipt Date: 20111107
  Transmission Date: 20120403
  Serious: Yes (Hospitalization)
  Sender: FDA-Public Use
  Company Number: US-ROCHE-1010052

PATIENT

DRUGS (1)
  1. DIAZEPAM [Suspect]
     Indication: SEDATION
     Route: 065

REACTIONS (2)
  - FRACTURE [None]
  - HIP FRACTURE [None]
